FAERS Safety Report 7491343-6 (Version None)
Quarter: 2011Q2

REPORT INFORMATION
  Report Type: 
  Country: None (occurrence: None)
  Receive Date: 20110519
  Receipt Date: 20110511
  Transmission Date: 20111010
  Serious: Yes (Other)
  Sender: FDA-Public Use
  Company Number: US-B.I. PHARMACEUTICALS,INC./RIDGEFIELD-2011-BP-12436BP

PATIENT
  Age: 86 Year
  Sex: Female

DRUGS (4)
  1. ASPIRIN [Concomitant]
     Indication: CARDIAC DISORDER
     Route: 048
  2. POTASSIUM [Concomitant]
     Indication: SUPPLEMENTATION THERAPY
     Route: 048
  3. PRADAXA [Suspect]
     Indication: ATRIAL FIBRILLATION
     Dosage: 300 MG
     Route: 048
     Dates: start: 20101201
  4. MULTI-VITAMIN [Concomitant]
     Indication: ROUTINE HEALTH MAINTENANCE
     Route: 048

REACTIONS (10)
  - PROTHROMBIN TIME ABNORMAL [None]
  - BLOOD CHOLESTEROL INCREASED [None]
  - RASH [None]
  - DENTAL CARIES [None]
  - PAIN [None]
  - AGITATION [None]
  - HYPERTENSION [None]
  - DYSPEPSIA [None]
  - CARDIAC FAILURE CONGESTIVE [None]
  - COAGULATION TIME PROLONGED [None]
